FAERS Safety Report 8514397 (Version 3)
Quarter: 2013Q4

REPORT INFORMATION
  Report Type: Spontaneous
  Country: US (occurrence: US)
  Receive Date: 20120416
  Receipt Date: 20131022
  Transmission Date: 20140711
  Serious: Yes (Hospitalization, Other)
  Sender: FDA-Public Use
  Company Number: US-MERCK-1204USA01793

PATIENT
  Sex: Female

DRUGS (6)
  1. FOSAMAX [Suspect]
     Indication: OSTEOPOROSIS
     Dosage: 70 MG, QW
     Route: 048
     Dates: start: 20021112, end: 20080304
  2. FOSAMAX [Suspect]
     Indication: OSTEOPOROSIS
     Route: 048
  3. ALENDRONATE SODIUM [Suspect]
     Indication: OSTEOPOROSIS
     Dosage: 70 MG, QW
     Route: 048
     Dates: start: 20080304, end: 20100722
  4. CALCIUM (UNSPECIFIED) (+) VITAMIN D (UNSPECIFIED) [Concomitant]
     Dosage: 250 MG, QD
     Dates: start: 2000
  5. VITAMINS (UNSPECIFIED) [Concomitant]
     Dosage: 2000 IU, QD
     Dates: start: 2000
  6. PREDNISONE [Concomitant]
     Indication: TEMPORAL ARTERITIS

REACTIONS (9)
  - Open reduction of fracture [Unknown]
  - Open reduction of fracture [Unknown]
  - Femur fracture [Unknown]
  - Femur fracture [Unknown]
  - Low turnover osteopathy [Unknown]
  - Osteopenia [Unknown]
  - Pubis fracture [Unknown]
  - Osteoarthritis [Unknown]
  - Cataract [Unknown]
